FAERS Safety Report 8986347 (Version 1)
Quarter: 2012Q4

REPORT INFORMATION
  Report Type: Report from Study
  Country: JP (occurrence: JP)
  Receive Date: 20121227
  Receipt Date: 20121227
  Transmission Date: 20130627
  Serious: Yes (Hospitalization)
  Sender: FDA-Public Use
  Company Number: JP-ACTELION-A-CH2012-68114

PATIENT
  Age: 64 Year
  Sex: Male
  Weight: 65 kg

DRUGS (11)
  1. TRACLEER [Suspect]
     Indication: PULMONARY ARTERIAL HYPERTENSION
     Dosage: 125 mg, bid
     Route: 048
     Dates: start: 20110727, end: 20111006
  2. TELMISARTAN [Suspect]
     Indication: HYPERTENSION
     Dosage: 20 mg, qd
     Route: 048
     Dates: start: 20110725, end: 20111010
  3. TELMISARTAN [Suspect]
     Dosage: 40 mg, qd
     Route: 048
     Dates: start: 20111011
  4. TRIMETHOPRIM SULFAMETHOXAZOLE [Concomitant]
  5. SARPOGRELATE HYDROCHLORIDE [Concomitant]
  6. TEPRENONE [Concomitant]
  7. FAMOTIDINE [Concomitant]
  8. ATORVASTATIN CALCIUM [Concomitant]
  9. FLUCONAZOLE [Concomitant]
  10. CARVEDILOL [Concomitant]
  11. PREDNISOLONE [Concomitant]

REACTIONS (3)
  - Liver disorder [Recovered/Resolved]
  - Gamma-glutamyltransferase increased [Recovered/Resolved]
  - Fatigue [Recovered/Resolved]
